FAERS Safety Report 19685265 (Version 1)
Quarter: 2021Q3

REPORT INFORMATION
  Report Type: Spontaneous
  Country: US (occurrence: US)
  Receive Date: 20210811
  Receipt Date: 20210811
  Transmission Date: 20211014
  Serious: Yes (Hospitalization, Disabling)
  Sender: FDA-Public Use
  Company Number: None

PATIENT
  Age: 54 Year
  Sex: Female
  Weight: 69.75 kg

DRUGS (6)
  1. BOTOX [Suspect]
     Active Substance: ONABOTULINUMTOXINA
     Indication: MIGRAINE
     Route: 058
     Dates: start: 20210301, end: 20210301
  2. VIIBRYD [Concomitant]
     Active Substance: VILAZODONE HYDROCHLORIDE
  3. B?2 [Concomitant]
  4. LORZAPRAM [Concomitant]
  5. MAGNESIUM [Concomitant]
     Active Substance: MAGNESIUM
  6. BUSPERONE [Concomitant]

REACTIONS (10)
  - Suicidal ideation [None]
  - Anxiety [None]
  - Decreased appetite [None]
  - Impaired work ability [None]
  - Paranoia [None]
  - Muscle spasms [None]
  - Muscle twitching [None]
  - Social problem [None]
  - Depression [None]
  - Gastric disorder [None]

NARRATIVE: CASE EVENT DATE: 20210418
